FAERS Safety Report 23963368 (Version 1)
Quarter: 2024Q2

REPORT INFORMATION
  Report Type: Spontaneous
  Country: US (occurrence: None)
  Receive Date: 20240611
  Receipt Date: 20240611
  Transmission Date: 20240716
  Serious: Yes (Hospitalization)
  Sender: FDA-Public Use
  Company Number: None

PATIENT
  Age: 44 Year
  Sex: Female

DRUGS (6)
  1. WINREVAIR [Suspect]
     Active Substance: SOTATERCEPT-CSRK
     Dates: start: 20240502
  2. REMODULIN MDV [Concomitant]
  3. ADCIRCA [Concomitant]
  4. STERILE DILUENT FOR REMODULIN [Concomitant]
  5. PUMP CADD LEGACY [Concomitant]
  6. OPSUMIT [Concomitant]

REACTIONS (1)
  - Dizziness [None]

NARRATIVE: CASE EVENT DATE: 20240529
